FAERS Safety Report 7714638-7 (Version None)
Quarter: 2011Q3

REPORT INFORMATION
  Report Type: 
  Country: None (occurrence: None)
  Receive Date: 20110829
  Receipt Date: 20110818
  Transmission Date: 20111222
  Serious: Yes (Death)
  Sender: FDA-Public Use
  Company Number: FI-JNJFOC-20110805558

PATIENT
  Age: 38 Year
  Sex: Male
  Weight: 131 kg

DRUGS (4)
  1. AMARYL [Concomitant]
  2. ATACAND [Concomitant]
  3. DIFORMIN [Concomitant]
  4. STELARA [Suspect]
     Indication: PSORIASIS
     Route: 058
     Dates: start: 20100501, end: 20110801

REACTIONS (1)
  - DEATH [None]
